FAERS Safety Report 19593635 (Version 1)
Quarter: 2021Q3

REPORT INFORMATION
  Report Type: Spontaneous
  Country: FR (occurrence: FR)
  Receive Date: 20210722
  Receipt Date: 20210722
  Transmission Date: 20211014
  Serious: Yes (Hospitalization)
  Sender: FDA-Public Use
  Company Number: FR-TEVA-2021-FR-1934256

PATIENT
  Age: 69 Year
  Sex: Female
  Weight: 89 kg

DRUGS (8)
  1. ELIQUIS [Suspect]
     Active Substance: APIXABAN
     Indication: ANTICOAGULANT THERAPY
     Dosage: 2DOSAGEFORM
     Route: 048
     Dates: end: 20210609
  2. ZOPICLONE [Concomitant]
     Active Substance: ZOPICLONE
  3. AMIODARONE [Concomitant]
     Active Substance: AMIODARONE
  4. VICTOZA [Suspect]
     Active Substance: LIRAGLUTIDE
     Indication: DIABETES MELLITUS
     Dosage: 1DOSAGEFORM
     Route: 048
     Dates: end: 20210609
  5. LEVOTHYROX [Concomitant]
     Active Substance: LEVOTHYROXINE
  6. FUROSEMIDE. [Suspect]
     Active Substance: FUROSEMIDE
     Indication: DIURETIC THERAPY
     Dosage: 1.5DOSAGEFORM
     Route: 048
     Dates: end: 20210609
  7. METFORMINE [Suspect]
     Active Substance: METFORMIN HYDROCHLORIDE
     Indication: DIABETES MELLITUS
     Dosage: 3DOSAGEFORM
     Route: 048
     Dates: end: 20210609
  8. BISOPROLOL (FUMARATE ACIDE DE) [Concomitant]
     Active Substance: BISOPROLOL FUMARATE

REACTIONS (1)
  - Acute kidney injury [Recovered/Resolved]

NARRATIVE: CASE EVENT DATE: 20210609
